FAERS Safety Report 5402137-7 (Version None)
Quarter: 2007Q3

REPORT INFORMATION
  Report Type: 
  Country: None (occurrence: None)
  Receive Date: 20070730
  Receipt Date: 20070713
  Transmission Date: 20080115
  Serious: Yes (Hospitalization)
  Sender: FDA-Public Use
  Company Number: IND-AE-07-SAN-037

PATIENT
  Age: 77 Year
  Sex: Female

DRUGS (7)
  1. SANCTURA [Suspect]
     Dates: start: 20070403, end: 20070405
  2. SINGULAIR [Concomitant]
  3. ALBUTEROL [Concomitant]
  4. PREVACID [Concomitant]
  5. LEVOTHYROXINE SODIUM [Concomitant]
  6. FLONASE [Concomitant]
  7. XANAX [Concomitant]

REACTIONS (18)
  - ASTHMA [None]
  - BLOOD ALBUMIN DECREASED [None]
  - COLONIC OBSTRUCTION [None]
  - COLONIC STENOSIS [None]
  - HAEMATEMESIS [None]
  - HAEMOGLOBIN DECREASED [None]
  - HYPOTENSION [None]
  - INTESTINAL ISCHAEMIA [None]
  - MALNUTRITION [None]
  - PLEURAL EFFUSION [None]
  - POSTOPERATIVE WOUND COMPLICATION [None]
  - PRESYNCOPE [None]
  - PROTEIN TOTAL DECREASED [None]
  - RENAL FAILURE ACUTE [None]
  - RESPIRATORY DISTRESS [None]
  - TACHYCARDIA [None]
  - URINARY RETENTION [None]
  - WOUND SECRETION [None]
